FAERS Safety Report 6686132-6 (Version None)
Quarter: 2010Q2

REPORT INFORMATION
  Report Type: 
  Country: None (occurrence: None)
  Receive Date: 20100414
  Receipt Date: 20091116
  Transmission Date: 20101027
  Serious: Yes (Other)
  Sender: FDA-Public Use
  Company Number: ADE# 09-137

PATIENT
  Age: 58 Year
  Sex: Male
  Weight: 136.5327 kg

DRUGS (1)
  1. METFORMIN HYDROCHLORIDE [Suspect]
     Indication: TYPE 2 DIABETES MELLITUS
     Dosage: 3 TAB QAM WITH BREAKFAST
     Dates: start: 20090101

REACTIONS (3)
  - CARDIAC FIBRILLATION [None]
  - PRODUCT SUBSTITUTION ISSUE [None]
  - RASH GENERALISED [None]
